FAERS Safety Report 21758304 (Version 1)
Quarter: 2022Q4

REPORT INFORMATION
  Report Type: Spontaneous
  Country: CN (occurrence: CN)
  Receive Date: 20221221
  Receipt Date: 20221221
  Transmission Date: 20230113
  Serious: Yes (Death, Life-Threatening, Other)
  Sender: FDA-Public Use
  Company Number: CN-AMGEN-CHNSP2022217317

PATIENT

DRUGS (20)
  1. BLINCYTO [Suspect]
     Active Substance: BLINATUMOMAB
     Indication: Philadelphia positive acute lymphocytic leukaemia
     Dosage: UNK
     Route: 065
  2. VINCRISTINE [Concomitant]
     Active Substance: VINCRISTINE
     Indication: Philadelphia positive acute lymphocytic leukaemia
     Dosage: UNK
  3. PREDNISONE [Concomitant]
     Active Substance: PREDNISONE
     Indication: Philadelphia positive acute lymphocytic leukaemia
     Dosage: UNK
  4. DEXAMETHASONE [Concomitant]
     Active Substance: DEXAMETHASONE
     Indication: Philadelphia positive acute lymphocytic leukaemia
     Dosage: UNK
     Route: 029
  5. DAUNORUBICIN [Concomitant]
     Active Substance: DAUNORUBICIN
     Indication: Philadelphia positive acute lymphocytic leukaemia
     Dosage: UNK
  6. DOXORUBICIN [Concomitant]
     Active Substance: DOXORUBICIN
     Indication: Philadelphia positive acute lymphocytic leukaemia
     Dosage: UNK
  7. ASPARAGINASE [Concomitant]
     Active Substance: ASPARAGINASE
     Indication: Philadelphia positive acute lymphocytic leukaemia
     Dosage: UNK
  8. CYCLOPHOSPHAMIDE [Concomitant]
     Active Substance: CYCLOPHOSPHAMIDE
     Indication: Philadelphia positive acute lymphocytic leukaemia
     Dosage: UNK
  9. CYCLOPHOSPHAMIDE [Concomitant]
     Active Substance: CYCLOPHOSPHAMIDE
     Dosage: 1.8 GRAM PER SQUARE METRE, QD
  10. CYCLOPHOSPHAMIDE\DEXAMETHASONE\DOXORUBICIN\VINCRISTINE [Concomitant]
     Active Substance: CYCLOPHOSPHAMIDE\DEXAMETHASONE\DOXORUBICIN\VINCRISTINE
     Indication: Philadelphia positive acute lymphocytic leukaemia
     Dosage: UNK
  11. METHOTREXATE [Concomitant]
     Active Substance: METHOTREXATE
     Indication: Philadelphia positive acute lymphocytic leukaemia
     Dosage: 15-20 MILLIGRAM PER SQUARE METRE, QD
  12. METHOTREXATE [Concomitant]
     Active Substance: METHOTREXATE
     Dosage: UNK
     Route: 029
  13. CYTARABINE [Concomitant]
     Active Substance: CYTARABINE
     Indication: Philadelphia positive acute lymphocytic leukaemia
     Dosage: UNK
     Route: 029
  14. CYTARABINE [Concomitant]
     Active Substance: CYTARABINE
     Dosage: 4 GRAM PER SQUARE METRE, QD
  15. ASPIRIN [Concomitant]
     Active Substance: ASPIRIN
     Indication: Philadelphia positive acute lymphocytic leukaemia
     Dosage: UNK
  16. MERCAPTOPURINE [Concomitant]
     Active Substance: MERCAPTOPURINE
     Indication: Philadelphia positive acute lymphocytic leukaemia
     Dosage: 60-75 MILLIGRAM PER SQUARE METRE, QD
  17. MITOXANTRONE [Concomitant]
     Active Substance: MITOXANTRONE HYDROCHLORIDE
     Indication: Philadelphia positive acute lymphocytic leukaemia
     Dosage: UNK
  18. DASATINIB [Concomitant]
     Active Substance: DASATINIB
     Indication: Philadelphia positive acute lymphocytic leukaemia
     Dosage: UNK
  19. IMATINIB [Concomitant]
     Active Substance: IMATINIB
     Indication: Philadelphia positive acute lymphocytic leukaemia
     Dosage: UNK
  20. RUXOLITINIB [Concomitant]
     Active Substance: RUXOLITINIB
     Indication: Philadelphia positive acute lymphocytic leukaemia
     Dosage: UNK

REACTIONS (12)
  - Philadelphia positive acute lymphocytic leukaemia [Fatal]
  - Death [Fatal]
  - Acute graft versus host disease [Unknown]
  - Cytokine release syndrome [Unknown]
  - Myelosuppression [Unknown]
  - Haemorrhage [Unknown]
  - Chronic graft versus host disease [Unknown]
  - Therapy non-responder [Unknown]
  - Pleural effusion [Unknown]
  - Minimal residual disease [Unknown]
  - Rash [Unknown]
  - Infection [Unknown]
